FAERS Safety Report 16263885 (Version 1)
Quarter: 2019Q2

REPORT INFORMATION
  Report Type: Spontaneous
  Country: US (occurrence: US)
  Receive Date: 20190501
  Receipt Date: 20190501
  Transmission Date: 20190711
  Serious: Yes (Hospitalization)
  Sender: FDA-Public Use
  Company Number: None

PATIENT
  Age: 59 Year
  Weight: 58.5 kg

DRUGS (5)
  1. COZAAR [Suspect]
     Active Substance: LOSARTAN POTASSIUM
     Indication: HYPERTENSION
     Dosage: ?          QUANTITY:1 TABLET(S);?
     Route: 048
     Dates: start: 20190420, end: 20190430
  2. FISH OIL [Concomitant]
     Active Substance: FISH OIL
  3. BONE-UP [Concomitant]
  4. VITAMINS [Concomitant]
     Active Substance: VITAMINS
  5. COQ10 [Concomitant]
     Active Substance: UBIDECARENONE

REACTIONS (1)
  - Chest pain [None]

NARRATIVE: CASE EVENT DATE: 20190430
